FAERS Safety Report 6540392-0 (Version None)
Quarter: 2010Q1

REPORT INFORMATION
  Report Type: 
  Country: None (occurrence: None)
  Receive Date: 20100113
  Receipt Date: 20100107
  Transmission Date: 20100710
  Serious: Yes (Death, Hospitalization)
  Sender: FDA-Public Use
  Company Number: 2009US003160

PATIENT
  Age: 47 Year
  Sex: Male
  Weight: 70 kg

DRUGS (11)
  1. PROGRAF [Suspect]
     Indication: RENAL TRANSPLANT
     Dosage: 2 MG, BID, ORAL ; 5 MG, TOTAL DOSE
     Route: 048
  2. CELLCEPT [Concomitant]
  3. PREDNISONE [Concomitant]
  4. ASPIRIN [Concomitant]
  5. CITRACAL + D (CALCIUM CITRATE, ERGOCALCIFEROL) [Concomitant]
  6. CADUET [Concomitant]
  7. LANTUS [Concomitant]
  8. HUMALOG [Concomitant]
  9. ACTONEL [Concomitant]
  10. LOPRESSOR [Concomitant]
  11. PREVACID [Concomitant]

REACTIONS (8)
  - ACUTE RESPIRATORY DISTRESS SYNDROME [None]
  - CARDIOGENIC SHOCK [None]
  - CARDIOMYOPATHY [None]
  - DIARRHOEA [None]
  - NAUSEA [None]
  - PNEUMONIA STAPHYLOCOCCAL [None]
  - SEPSIS [None]
  - VOMITING [None]
